FAERS Safety Report 24328323 (Version 4)
Quarter: 2024Q4

REPORT INFORMATION
  Report Type: Report from Study
  Country: US (occurrence: US)
  Receive Date: 20240917
  Receipt Date: 20241025
  Transmission Date: 20250114
  Serious: No
  Sender: SUNOVION
  Company Number: US-SUMITOMO PHARMA SWITZERLAND GMBH-2024SPA002176

PATIENT

DRUGS (24)
  1. ORGOVYX [Suspect]
     Active Substance: RELUGOLIX
     Indication: Prostate cancer
     Dosage: 360 MG, SINGLE
     Route: 048
     Dates: start: 20240710, end: 20240710
  2. ORGOVYX [Suspect]
     Active Substance: RELUGOLIX
     Dosage: 120 MG, QD
     Route: 048
     Dates: start: 20240711
  3. DUPIXENT [Concomitant]
     Active Substance: DUPILUMAB
     Indication: Psoriasis
     Dosage: UNK
     Route: 065
  4. DUPIXENT [Concomitant]
     Active Substance: DUPILUMAB
     Indication: Eczema
  5. BRIMONIDINE [Concomitant]
     Active Substance: BRIMONIDINE TARTRATE
     Dosage: UNK
     Route: 065
  6. VITAMIN C [Concomitant]
     Active Substance: ASCORBIC ACID
     Dosage: 500 MG, QD
     Route: 048
  7. ZINC [Concomitant]
     Active Substance: ZINC
     Dosage: UNK
     Route: 065
  8. VITAMIN D2 [Concomitant]
     Active Substance: ERGOCALCIFEROL
     Dosage: UNK
     Route: 065
  9. OXYBUTYNIN [Concomitant]
     Active Substance: OXYBUTYNIN
     Route: 065
  10. RESTASIS [Concomitant]
     Active Substance: CYCLOSPORINE
     Dosage: UNK
     Route: 065
  11. TIMOPTIC [Concomitant]
     Active Substance: TIMOLOL MALEATE
     Dosage: 0.5% OPHT SOLN 5ML
     Route: 065
  12. DITROPAN [Concomitant]
     Active Substance: OXYBUTYNIN CHLORIDE
     Indication: Hypertonic bladder
     Dosage: UNK
     Route: 065
     Dates: start: 20240116
  13. VOLTAREN [Concomitant]
     Active Substance: DICLOFENAC SODIUM
     Dosage: UNK
     Route: 065
  14. SULFAMETHOXAZOLE AND TRIMETHOPRIM [Concomitant]
     Active Substance: SULFAMETHOXAZOLE\TRIMETHOPRIM
     Dosage: 800/160 MG
     Route: 065
  15. TRAMADOL HCL [Concomitant]
     Active Substance: TRAMADOL HYDROCHLORIDE
     Dosage: 50 MG
     Route: 065
  16. CEPHALEXIN [Concomitant]
     Active Substance: CEPHALEXIN
     Dosage: 500 MG
     Route: 065
  17. CICLOPIROX [Concomitant]
     Active Substance: CICLOPIROX
     Dosage: 1% SHAMPOO 120 ML
     Route: 065
  18. CLOBETASOL PROPIONATE [Concomitant]
     Active Substance: CLOBETASOL PROPIONATE
     Dosage: 0.05% OINT 15GM
     Route: 065
  19. CYCLOSPORINE [Concomitant]
     Active Substance: CYCLOSPORINE
     Dosage: 0.05% 0P SINGLE USE7 60
     Route: 065
  20. DICLOFENAC SODIUM [Concomitant]
     Active Substance: DICLOFENAC SODIUM
     Dosage: 1% GEL 100GM (RX)
     Route: 065
  21. DICLOFENAC SODIUM [Concomitant]
     Active Substance: DICLOFENAC SODIUM
     Dosage: 75 MG
     Route: 065
  22. METHYLPREDNISOLONE [Concomitant]
     Active Substance: METHYLPREDNISOLONE
     Dosage: 4 MG
     Route: 065
  23. OXYBUTYNIN CHLORIDE [Concomitant]
     Active Substance: OXYBUTYNIN CHLORIDE
     Dosage: 5 MG
     Route: 065
  24. OXYTROL [Concomitant]
     Active Substance: OXYBUTYNIN
     Indication: Hypertonic bladder
     Dosage: UNK
     Dates: start: 20240813

REACTIONS (7)
  - Pollakiuria [Recovered/Resolved]
  - Dry mouth [Not Recovered/Not Resolved]
  - Dry skin [Not Recovered/Not Resolved]
  - Dry eye [Unknown]
  - Hot flush [Not Recovered/Not Resolved]
  - Arthralgia [Not Recovered/Not Resolved]
  - Fatigue [Not Recovered/Not Resolved]
